FAERS Safety Report 11188652 (Version 1)
Quarter: 2015Q2

REPORT INFORMATION
  Report Type: Spontaneous
  Country: US (occurrence: US)
  Receive Date: 20150615
  Receipt Date: 20150615
  Transmission Date: 20150821
  Serious: No
  Sender: FDA-Public Use
  Company Number: US-009507513-1506USA004640

PATIENT
  Age: 67 Year

DRUGS (3)
  1. DEXAMETHASONE. [Suspect]
     Active Substance: DEXAMETHASONE
     Indication: PLASMA CELL MYELOMA
     Dosage: 40 MG, QW
     Dates: start: 20140418, end: 20141215
  2. MELPHALAN [Suspect]
     Active Substance: MELPHALAN
     Indication: PLASMA CELL MYELOMA
     Dosage: 200 MG, ONCE
     Dates: start: 20140909, end: 20140909
  3. BORTEZOMIB [Suspect]
     Active Substance: BORTEZOMIB
     Dosage: 1.4 MG, CYCLICAL
     Route: 058
     Dates: start: 20140319

REACTIONS (4)
  - Nausea [Unknown]
  - Asthenia [Unknown]
  - Hiccups [Unknown]
  - Dehydration [Unknown]

NARRATIVE: CASE EVENT DATE: 20140928
